FAERS Safety Report 6695381-2 (Version None)
Quarter: 2010Q2

REPORT INFORMATION
  Report Type: 
  Country: None (occurrence: None)
  Receive Date: 20100423
  Receipt Date: 20100423
  Transmission Date: 20101027
  Serious: Yes (Other)
  Sender: FDA-Public Use
  Company Number: None

PATIENT
  Sex: Female
  Weight: 58.9676 kg

DRUGS (2)
  1. CLIMARA [Suspect]
     Dosage: 0.0375; 0.05
     Dates: start: 20080201
  2. CLIMARA [Suspect]
     Dosage: 0.0375; 0.05
     Dates: start: 20100401

REACTIONS (1)
  - APPLICATION SITE RASH [None]
